FAERS Safety Report 21541624 (Version 1)
Quarter: 2022Q4

REPORT INFORMATION
  Report Type: Spontaneous
  Country: US (occurrence: None)
  Receive Date: 20221101
  Receipt Date: 20221101
  Transmission Date: 20230113
  Serious: No
  Sender: FDA-Public Use
  Company Number: None

PATIENT
  Age: 50 Year
  Sex: Female
  Weight: 113.85 kg

DRUGS (1)
  1. ORENCIA [Suspect]
     Active Substance: ABATACEPT
     Indication: Rheumatoid arthritis
     Dosage: FREQUENCY : EVERY OTHER WEEK;?INFUSE 1000MG INTRAVENOUSLY OVER 1 HOUR AT WEEKS 0,?2 AND 4 AS DIRECTE
     Route: 042
     Dates: start: 202007

REACTIONS (1)
  - Wound [None]
